FAERS Safety Report 15743984 (Version 2)
Quarter: 2019Q1

REPORT INFORMATION
  Report Type: Spontaneous
  Country: FI (occurrence: FI)
  Receive Date: 20181220
  Receipt Date: 20190119
  Transmission Date: 20190417
  Serious: Yes (Life-Threatening, Hospitalization, Other)
  Sender: FDA-Public Use
  Company Number: FI-ACCORD-096608

PATIENT
  Age: 56 Year
  Sex: Female
  Weight: 176 kg

DRUGS (8)
  1. METHYLPREDNISOLONE. [Suspect]
     Active Substance: METHYLPREDNISOLONE
     Indication: PRODUCT USED FOR UNKNOWN INDICATION
     Route: 042
  2. ONDANSETRON [Suspect]
     Active Substance: ONDANSETRON
     Indication: NAUSEA
     Dosage: 16,MG,DAILY
     Route: 048
     Dates: start: 20171206, end: 20171212
  3. URSODEOXYCHOLATE SODIUM/URSODEOXYCHOLIC ACID [Suspect]
     Active Substance: URSODIOL
     Indication: PRODUCT USED FOR UNKNOWN INDICATION
     Dosage: 900,MG,DAILY
     Route: 048
     Dates: start: 20171205
  4. TREOSULFAN [Suspect]
     Active Substance: TREOSULFAN
     Indication: PRODUCT USED FOR UNKNOWN INDICATION
     Route: 042
     Dates: start: 20171208, end: 20171209
  5. FLUDARABINE/FLUDARABINE PHOSPHATE [Suspect]
     Active Substance: FLUDARABINE PHOSPHATE
     Indication: PRODUCT USED FOR UNKNOWN INDICATION
     Route: 042
     Dates: start: 20171208, end: 20171209
  6. GRAFALON [Suspect]
     Active Substance: LAPINE T-LYMPHOCYTE IMMUNE GLOBULIN
     Indication: STEM CELL TRANSPLANT
     Dosage: 800,MG,
     Route: 042
     Dates: start: 20171208, end: 20171208
  7. CALCITRAN D3 [Suspect]
     Active Substance: CALCIUM CARBONATE\CHOLECALCIFEROL
     Indication: PRODUCT USED FOR UNKNOWN INDICATION
     Dosage: 2,DF,DAILY
     Route: 048
     Dates: start: 20171206
  8. ALLOPURINOL. [Suspect]
     Active Substance: ALLOPURINOL
     Indication: PROPHYLAXIS
     Dosage: 300,MG,DAILY
     Route: 048
     Dates: start: 20171205, end: 20171210

REACTIONS (4)
  - Pyrexia [Not Recovered/Not Resolved]
  - Disseminated intravascular coagulation [Not Recovered/Not Resolved]
  - Renal impairment [Not Recovered/Not Resolved]
  - Acute graft versus host disease [Not Recovered/Not Resolved]

NARRATIVE: CASE EVENT DATE: 20171209
